FAERS Safety Report 8962713 (Version 2)
Quarter: 2012Q4

REPORT INFORMATION
  Report Type: 
  Country: JP (occurrence: JP)
  Receive Date: 20121213
  Receipt Date: 20121221
  Transmission Date: 20130627
  Serious: Yes (Hospitalization)
  Sender: FDA-Public Use
  Company Number: JP-PFIZER INC-2012256745

PATIENT
  Age: 69 Year
  Sex: Female
  Weight: 64 kg

DRUGS (2)
  1. JZOLOFT [Suspect]
     Indication: PANIC DISORDER
     Dosage: 25 mg, 1x/day
     Route: 048
     Dates: start: 20121011, end: 20121012
  2. MICARDIS [Suspect]
     Indication: HYPERTENSION
     Dosage: 40 mg, 1x/day
     Route: 048
     Dates: start: 20120810

REACTIONS (7)
  - Toxic skin eruption [Recovered/Resolved]
  - Myalgia [Recovered/Resolved]
  - Pyrexia [Recovered/Resolved]
  - Joint swelling [Recovered/Resolved]
  - Blood urine present [Not Recovered/Not Resolved]
  - Protein urine present [Not Recovered/Not Resolved]
  - Red blood cell count increased [Recovered/Resolved]
